FAERS Safety Report 9652978 (Version 3)
Quarter: 2014Q1

REPORT INFORMATION
  Report Type: Spontaneous
  Country: US (occurrence: US)
  Receive Date: 20131029
  Receipt Date: 20140224
  Transmission Date: 20141002
  Serious: No
  Sender: FDA-Public Use
  Company Number: US-BIOGENIDEC-2013BI077949

PATIENT
  Age: 59 Year
  Sex: Female

DRUGS (12)
  1. TECFIDERA [Suspect]
     Indication: MULTIPLE SCLEROSIS
     Route: 048
     Dates: start: 201306
  2. AMPYRA [Concomitant]
     Indication: MULTIPLE SCLEROSIS
     Route: 048
     Dates: start: 2011
  3. LEVOTHYROXINE SODIUM [Concomitant]
  4. ADVAIR [Concomitant]
  5. DETROL LA [Concomitant]
  6. ORPHENADRINE [Concomitant]
  7. ETODOLAC [Concomitant]
  8. REMIFEMIN [Concomitant]
  9. CALCIUM [Concomitant]
  10. VITAMIN D [Concomitant]
  11. FLAXSEED OIL [Concomitant]
  12. TIZANIDINE [Concomitant]

REACTIONS (7)
  - Neck pain [Recovered/Resolved]
  - Urticaria [Recovered/Resolved]
  - Mobility decreased [Not Recovered/Not Resolved]
  - Stress [Recovered/Resolved]
  - Flushing [Recovered/Resolved]
  - Pruritus [Recovered/Resolved]
  - Abdominal discomfort [Recovered/Resolved]
